FAERS Safety Report 10268745 (Version 2)
Quarter: 2014Q3

REPORT INFORMATION
  Report Type: Spontaneous
  Country: US (occurrence: US)
  Receive Date: 20140630
  Receipt Date: 20140702
  Transmission Date: 20150326
  Serious: Yes (Other)
  Sender: FDA-Public Use
  Company Number: US-GLAXOSMITHKLINE-A0930084A

PATIENT
  Age: 65 Year
  Sex: Female

DRUGS (1)
  1. VALTREX [Suspect]
     Active Substance: VALACYCLOVIR HYDROCHLORIDE
     Indication: EYE DISORDER
     Route: 048
     Dates: start: 201103

REACTIONS (9)
  - Skin abrasion [Unknown]
  - Upper limb fracture [Unknown]
  - Fall [Unknown]
  - Therapeutic response changed [Unknown]
  - Hand fracture [Unknown]
  - Pain in extremity [Unknown]
  - Blindness [Not Recovered/Not Resolved]
  - Malaise [Unknown]
  - Ligament sprain [Unknown]

NARRATIVE: CASE EVENT DATE: 20140505
